FAERS Safety Report 22592272 (Version 1)
Quarter: 2023Q2

REPORT INFORMATION
  Report Type: Spontaneous
  Country: ES (occurrence: ES)
  Receive Date: 20230613
  Receipt Date: 20230613
  Transmission Date: 20230721
  Serious: Yes (Death, Hospitalization, Other)
  Sender: FDA-Public Use
  Company Number: ES-ROCHE-694016

PATIENT
  Age: 66 Year
  Sex: Female

DRUGS (9)
  1. CAPECITABINE [Interacting]
     Active Substance: CAPECITABINE
     Indication: Invasive ductal breast carcinoma
     Dosage: 1,000 MG/M2 TWICE A DAY FOR 14 DAYS, REPEATED ON DAY 22
     Route: 048
  2. CAPECITABINE [Interacting]
     Active Substance: CAPECITABINE
     Indication: Invasive ductal breast carcinoma
     Dosage: REDUCED TO 800 MG/M2 AND 600 MG/M2
     Route: 048
  3. CAPECITABINE [Interacting]
     Active Substance: CAPECITABINE
     Indication: Invasive ductal breast carcinoma
     Dosage: REDUCED TO 800 MG/M2 AND 600 MG/M2
     Route: 048
  4. CAPECITABINE [Interacting]
     Active Substance: CAPECITABINE
     Indication: Invasive ductal breast carcinoma
     Dosage: SEVENTH CYCLE DOSE OF 1,000 MG EVERY 12 H FOR 14 DAYS, FOLLOWED BY 7 DAYS OF REST
     Route: 048
  5. BRIVUDINE [Interacting]
     Active Substance: BRIVUDINE
     Indication: Herpes zoster
  6. OMEPRAZOLE [Concomitant]
     Active Substance: OMEPRAZOLE
     Indication: Dyspepsia
  7. DOXORUBICIN [Concomitant]
     Active Substance: DOXORUBICIN
     Indication: Invasive ductal breast carcinoma
     Dosage: FOUR CYCLES
     Route: 042
  8. CYCLOPHOSPHAMIDE [Concomitant]
     Active Substance: CYCLOPHOSPHAMIDE
     Indication: Invasive ductal breast carcinoma
     Dosage: FOUR CYCLES
     Route: 042
  9. DOCETAXEL [Concomitant]
     Active Substance: DOCETAXEL
     Indication: Invasive ductal breast carcinoma
     Dosage: FOUR CYCLES
     Route: 042

REACTIONS (15)
  - Palmar-plantar erythrodysaesthesia syndrome [Recovered/Resolved]
  - Pharyngeal inflammation [Recovered/Resolved]
  - Stomatitis [Recovered/Resolved]
  - Neutropenia [Recovered/Resolved]
  - Thrombocytopenia [Recovered/Resolved]
  - Melaena [Recovering/Resolving]
  - Abdominal pain [Unknown]
  - Pyrexia [Recovered/Resolved]
  - Gastrointestinal haemorrhage [Unknown]
  - Bone marrow failure [Recovered/Resolved]
  - Drug interaction [Unknown]
  - Anaemia [Recovered/Resolved]
  - Onycholysis [Unknown]
  - Tooth discolouration [Unknown]
  - Neoplasm progression [Fatal]
